FAERS Safety Report 12737505 (Version 1)
Quarter: 2016Q3

REPORT INFORMATION
  Report Type: Spontaneous
  Country: US (occurrence: US)
  Receive Date: 20160913
  Receipt Date: 20160913
  Transmission Date: 20161109
  Serious: Yes (Other)
  Sender: FDA-Public Use
  Company Number: US-BAYER-2016-176433

PATIENT

DRUGS (1)
  1. CIPRO [Suspect]
     Active Substance: CIPROFLOXACIN HYDROCHLORIDE
     Indication: URINARY TRACT INFECTION
     Dosage: UNK
     Dates: start: 20160615, end: 20160617

REACTIONS (17)
  - Mitochondrial toxicity [Not Recovered/Not Resolved]
  - Headache [None]
  - Dizziness [None]
  - Weight decreased [Not Recovered/Not Resolved]
  - Job dissatisfaction [Not Recovered/Not Resolved]
  - Drug ineffective [None]
  - Hypoaesthesia [Not Recovered/Not Resolved]
  - Tendonitis [Not Recovered/Not Resolved]
  - Pain [Not Recovered/Not Resolved]
  - Tendon pain [Not Recovered/Not Resolved]
  - Multiple sclerosis [Not Recovered/Not Resolved]
  - Gait disturbance [Not Recovered/Not Resolved]
  - Migraine [None]
  - Neuropathy peripheral [Not Recovered/Not Resolved]
  - Loss of employment [Not Recovered/Not Resolved]
  - Off label use [None]
  - Fatigue [Not Recovered/Not Resolved]

NARRATIVE: CASE EVENT DATE: 201607
